FAERS Safety Report 9464018 (Version 1)
Quarter: 2013Q3

REPORT INFORMATION
  Report Type: Spontaneous
  Country: US (occurrence: US)
  Receive Date: 20130819
  Receipt Date: 20130819
  Transmission Date: 20140515
  Serious: Yes (Other)
  Sender: FDA-Public Use
  Company Number: US-BRISTOL-MYERS SQUIBB COMPANY-18871996

PATIENT
  Age: 46 Year
  Sex: Male

DRUGS (7)
  1. REYATAZ [Suspect]
  2. NORVIR [Suspect]
  3. EPIVIR [Suspect]
  4. ISENTRESS [Suspect]
  5. PRAVASTATINE [Concomitant]
  6. CARTIA XT [Concomitant]
  7. ULORIC [Concomitant]

REACTIONS (1)
  - Tubulointerstitial nephritis [Unknown]
